FAERS Safety Report 9836236 (Version 3)
Quarter: 2015Q4

REPORT INFORMATION
  Report Type: Report from Study
  Country: US (occurrence: US)
  Receive Date: 20140123
  Receipt Date: 20151030
  Transmission Date: 20160305
  Serious: Yes (Hospitalization, Disabling, Other)
  Sender: FDA-Public Use
  Company Number: US-ROCHE-1337086

PATIENT
  Sex: Male

DRUGS (2)
  1. VICODIN [Concomitant]
     Active Substance: ACETAMINOPHEN\HYDROCODONE BITARTRATE
     Indication: PAIN
  2. LUCENTIS [Suspect]
     Active Substance: RANIBIZUMAB
     Indication: DIABETIC EYE DISEASE
     Route: 065

REACTIONS (12)
  - Cerebrovascular accident [Recovering/Resolving]
  - Disability [Unknown]
  - Blindness [Unknown]
  - Myocardial infarction [Unknown]
  - Cerebral haemorrhage [Unknown]
  - Balance disorder [Unknown]
  - Lower limb fracture [Not Recovered/Not Resolved]
  - Concussion [Not Recovered/Not Resolved]
  - Cerebral infarction [Unknown]
  - Vision blurred [Not Recovered/Not Resolved]
  - Fall [Unknown]
  - Headache [Not Recovered/Not Resolved]
